FAERS Safety Report 5456306-0 (Version None)
Quarter: 2007Q3

REPORT INFORMATION
  Report Type: 
  Country: None (occurrence: None)
  Receive Date: 20070918
  Receipt Date: 20070913
  Transmission Date: 20080115
  Serious: Yes (Hospitalization)
  Sender: FDA-Public Use
  Company Number: GBWYE305713SEP07

PATIENT
  Sex: Female

DRUGS (1)
  1. TYGACIL [Suspect]
     Dosage: UNKNOWN
     Route: 042

REACTIONS (2)
  - DYSGEUSIA [None]
  - TONGUE DISCOLOURATION [None]
